FAERS Safety Report 11201365 (Version 1)
Quarter: 2015Q2

REPORT INFORMATION
  Report Type: Spontaneous
  Country: US (occurrence: None)
  Receive Date: 20150618
  Receipt Date: 20150618
  Transmission Date: 20150821
  Serious: Yes (Death)
  Sender: FDA-Public Use
  Company Number: None

PATIENT
  Age: 74 Year
  Sex: Female

DRUGS (20)
  1. OMEPRAZOLE (PRILOSEC) [Concomitant]
  2. ALBUTEROL (PROAIR HFA) [Concomitant]
  3. TIOTROPIUM (SPIRIVA WITH HANDHALER) [Concomitant]
  4. CARBOXYMETHYLCELLULOSE (REFRESH TEARS) [Concomitant]
  5. LETAIRIS [Suspect]
     Active Substance: AMBRISENTAN
     Indication: PULMONARY ARTERIAL HYPERTENSION
     Route: 048
     Dates: start: 201411, end: 201506
  6. FLUTICASONE (FLONASE) [Concomitant]
  7. NIFEDIPINE (PROCARDIA  XL) [Concomitant]
  8. CHOLECALCIFEROL [Concomitant]
     Active Substance: CHOLECALCIFEROL
  9. POTASSIUM CHLORIDE (K-TAB) [Concomitant]
  10. SILDENAFIL (REVATIO) [Concomitant]
  11. OXYGEN INTRANSAL [Concomitant]
  12. VITAMIN D3 [Concomitant]
     Active Substance: CHOLECALCIFEROL
  13. LETAIRIS [Suspect]
     Active Substance: AMBRISENTAN
     Indication: HEART DISEASE CONGENITAL
     Route: 048
     Dates: start: 201411, end: 201506
  14. FERROUS SULFATE (FEROSUL) [Concomitant]
  15. CYANOCOBALAMIN (VITAMIN B-12) [Concomitant]
  16. ASCORBIC ACID (VITAMIN C) [Concomitant]
     Active Substance: ASCORBIC ACID
  17. MECLIZINE (ANTIVERT) [Concomitant]
  18. ASPIRIN (ASPIR-LOW) [Concomitant]
  19. LASIX [Concomitant]
     Active Substance: FUROSEMIDE
  20. LORATADINE (CLARITIN) [Concomitant]

REACTIONS (1)
  - Therapy change [None]

NARRATIVE: CASE EVENT DATE: 20150617
